FAERS Safety Report 12861674 (Version 4)
Quarter: 2017Q1

REPORT INFORMATION
  Report Type: Report from Study
  Country: US (occurrence: US)
  Receive Date: 20161019
  Receipt Date: 20170110
  Transmission Date: 20170428
  Serious: No
  Sender: FDA-Public Use
  Company Number: US-BIOGEN-2016BI00306135

PATIENT
  Age: 36 Year
  Sex: Female

DRUGS (2)
  1. AVONEX [Suspect]
     Active Substance: INTERFERON BETA-1A
     Indication: MULTIPLE SCLEROSIS
     Route: 030
     Dates: start: 2003, end: 2008
  2. AVONEX [Suspect]
     Active Substance: INTERFERON BETA-1A
     Route: 030
     Dates: start: 20030401, end: 20081231

REACTIONS (15)
  - Cognitive disorder [Not Recovered/Not Resolved]
  - Band sensation [Recovered/Resolved]
  - Muscle strain [Recovered/Resolved]
  - Stress [Recovered/Resolved]
  - General symptom [Unknown]
  - Haemorrhage [Recovered/Resolved]
  - Pain [Recovered/Resolved]
  - Logorrhoea [Recovered/Resolved]
  - Influenza like illness [Recovered/Resolved]
  - Drug ineffective [Recovered/Resolved]
  - Joint injury [Recovered/Resolved]
  - Neuropathy peripheral [Not Recovered/Not Resolved]
  - Hypoaesthesia [Not Recovered/Not Resolved]
  - Insomnia [Not Recovered/Not Resolved]
  - Fatigue [Not Recovered/Not Resolved]

NARRATIVE: CASE EVENT DATE: 2003
